FAERS Safety Report 8725393 (Version 2)
Quarter: 2013Q1

REPORT INFORMATION
  Report Type: Report from Study
  Country: AU (occurrence: AU)
  Receive Date: 20120815
  Receipt Date: 20130206
  Transmission Date: 20140127
  Serious: Yes (Other)
  Sender: FDA-Public Use
  Company Number: AU-BRISTOL-MYERS SQUIBB COMPANY-16843765

PATIENT
  Age: 41 Year
  Sex: Female
  Weight: 72 kg

DRUGS (8)
  1. ORENCIA [Suspect]
     Indication: RHEUMATOID ARTHRITIS
     Dosage: MID JUN,INTD ON 29JUN12
     Route: 042
     Dates: start: 20101119
  2. METHOTREXATE [Concomitant]
  3. FOLIC ACID [Concomitant]
  4. PREDNISONE [Concomitant]
  5. LASIX [Concomitant]
  6. PENICILLIN [Concomitant]
  7. VOLTAREN [Concomitant]
  8. ENDEP [Concomitant]

REACTIONS (2)
  - Aortic aneurysm [Unknown]
  - Drug ineffective [Unknown]
